FAERS Safety Report 23813691 (Version 1)
Quarter: 2024Q2

REPORT INFORMATION
  Report Type: Spontaneous
  Country: US (occurrence: US)
  Receive Date: 20240503
  Receipt Date: 20240503
  Transmission Date: 20240716
  Serious: Yes (Hospitalization, Other)
  Sender: FDA-Public Use
  Company Number: US-CPL-004199

PATIENT
  Age: 20 Year
  Sex: Female

DRUGS (1)
  1. BUPROPION [Suspect]
     Active Substance: BUPROPION
     Dosage: INGESTED UNKNOWN QUANTITY EXTENDED-RELEASE FORMULATION

REACTIONS (12)
  - Maternal exposure during pregnancy [Unknown]
  - Intentional overdose [Unknown]
  - Sinus tachycardia [Recovered/Resolved]
  - Presyncope [Recovered/Resolved]
  - Electrocardiogram QT prolonged [Recovered/Resolved]
  - Bundle branch block bilateral [Recovered/Resolved]
  - Suicide attempt [Unknown]
  - Hypokalaemia [Recovered/Resolved]
  - Seizure [Recovered/Resolved]
  - Nausea [Recovered/Resolved]
  - Vomiting [Recovered/Resolved]
  - Paraesthesia [Recovered/Resolved]
